FAERS Safety Report 5879524-6 (Version None)
Quarter: 2008Q3

REPORT INFORMATION
  Report Type: 
  Country: None (occurrence: None)
  Receive Date: 20080912
  Receipt Date: 20080829
  Transmission Date: 20090109
  Serious: Yes (Disabling, Other)
  Sender: FDA-Public Use
  Company Number: US-ELI_LILLY_AND_COMPANY-US200808001947

PATIENT
  Age: 64 Year
  Sex: Female

DRUGS (20)
  1. EVISTA [Suspect]
     Indication: OSTEOPOROSIS
     Dosage: 60 MG, DAILY (1/D)
  2. HUMALOG [Concomitant]
     Dosage: 14 U, EACH MORNING
     Route: 065
  3. HUMALOG [Concomitant]
     Dosage: 14 U, EACH EVENING
     Route: 065
  4. HUMULIN N [Concomitant]
     Dosage: 29 U, EACH MORNING
     Route: 065
  5. HUMULIN N [Concomitant]
     Dosage: 16 U, EACH EVENING
     Route: 065
  6. LIPITOR [Concomitant]
     Dosage: 10 MG, DAILY (1/D)
     Route: 065
  7. LIPITOR [Concomitant]
     Dosage: 40 MG, QOD
     Route: 048
  8. NAPROSYN [Concomitant]
     Dosage: 375 MG, 3/D
     Route: 065
  9. CYTOTEC [Concomitant]
     Dosage: 100 MG, 2/D
     Route: 065
  10. TRAZODONE HCL [Concomitant]
     Dosage: 50 MG, DAILY (1/D)
     Route: 065
  11. PRIMIDONE [Concomitant]
     Dosage: 50 MG, DAILY (1/D)
     Route: 065
  12. ALPRAZOLAM [Concomitant]
     Dosage: 1 MG, DAILY (1/D)
  13. PAROXETINE HCL [Concomitant]
     Dosage: 10 MG, DAILY (1/D)
     Route: 065
  14. LISINOPRIL [Concomitant]
     Dosage: 2.5 MG, UNKNOWN
     Route: 065
  15. FUROSEMIDE [Concomitant]
     Dosage: 20 MG, EACH MORNING
     Route: 065
  16. GABAPENTIN [Concomitant]
     Dosage: 800 MG, 3/D
     Route: 048
  17. GABAPENTIN [Concomitant]
     Dosage: 600 MG, 3/D
     Route: 048
  18. GABAPENTIN [Concomitant]
     Dosage: 100 MG, 3/D
     Route: 048
  19. AMOXICILLIN SODIUM W/CLAVULANATE POTASSIUM [Concomitant]
     Dosage: 2 G, 2/D
     Route: 048
  20. ATENOLOL [Concomitant]
     Dosage: 25 MG, UNKNOWN
     Route: 065

REACTIONS (5)
  - BACK PAIN [None]
  - CONTUSION [None]
  - PAIN IN EXTREMITY [None]
  - SPINAL CORD DISORDER [None]
  - THORACIC VERTEBRAL FRACTURE [None]
